FAERS Safety Report 5049870-7 (Version None)
Quarter: 2006Q3

REPORT INFORMATION
  Report Type: 
  Country: None (occurrence: None)
  Receive Date: 20060706
  Receipt Date: 20060622
  Transmission Date: 20061208
  Serious: Yes (Disabling)
  Sender: FDA-Public Use
  Company Number: 200614255BWH

PATIENT
  Age: 60 Year
  Sex: Male

DRUGS (1)
  1. NEXAVAR [Suspect]
     Indication: ADENOID CYSTIC CARCINOMA
     Dosage: 200 MG, BID, ORAL
     Route: 048
     Dates: start: 20060607, end: 20060601

REACTIONS (9)
  - ABASIA [None]
  - CONDITION AGGRAVATED [None]
  - FLUSHING [None]
  - MUSCLE SPASMS [None]
  - NAUSEA [None]
  - NEUROPATHY PERIPHERAL [None]
  - PAIN [None]
  - PAIN IN EXTREMITY [None]
  - WEIGHT DECREASED [None]
